FAERS Safety Report 9977092 (Version 1)
Quarter: 2014Q1

REPORT INFORMATION
  Report Type: Report from Study
  Country: US (occurrence: US)
  Receive Date: 20140306
  Receipt Date: 20140306
  Transmission Date: 20141002
  Serious: No
  Sender: FDA-Public Use
  Company Number: US-ABBVIE-13P-163-1168071-00

PATIENT
  Age: 16 Year
  Sex: Female

DRUGS (4)
  1. HUMIRA [Suspect]
     Indication: CROHN^S DISEASE
     Dates: start: 20120918
  2. METHOTREXATE [Concomitant]
     Indication: CROHN^S DISEASE
     Dosage: 5 PILLS ONCE A WEEK
  3. VITAMIN D [Concomitant]
     Indication: VITAMIN D DECREASED
  4. IRON [Concomitant]
     Indication: BLOOD IRON DECREASED

REACTIONS (1)
  - Injection site reaction [Not Recovered/Not Resolved]
